FAERS Safety Report 20604549 (Version 1)
Quarter: 2022Q1

REPORT INFORMATION
  Report Type: Spontaneous
  Country: CN (occurrence: CN)
  Receive Date: 20220316
  Receipt Date: 20220316
  Transmission Date: 20220423
  Serious: Yes (Other)
  Sender: FDA-Public Use
  Company Number: CN-PFIZER INC-202200354662

PATIENT
  Age: 56 Year
  Sex: Male
  Weight: 72 kg

DRUGS (2)
  1. SOLU-MEDROL [Suspect]
     Active Substance: METHYLPREDNISOLONE SODIUM SUCCINATE
     Indication: Pyrexia
     Dosage: 40.000 MG, 1X/DAY
     Route: 041
     Dates: start: 20220224, end: 20220226
  2. DEXTROSE [Concomitant]
     Active Substance: DEXTROSE
     Indication: Central nervous system infection
     Dosage: 250.000 ML, 1X/DAY
     Route: 041
     Dates: start: 20220224, end: 20220226

REACTIONS (3)
  - Infection [Unknown]
  - Pyrexia [Unknown]
  - White blood cell count increased [Recovered/Resolved]

NARRATIVE: CASE EVENT DATE: 20220226
